FAERS Safety Report 19532303 (Version 4)
Quarter: 2025Q3

REPORT INFORMATION
  Report Type: Spontaneous
  Country: EU (occurrence: EU)
  Receive Date: 20210713
  Receipt Date: 20250723
  Transmission Date: 20251020
  Serious: Yes (Hospitalization, Other)
  Sender: NOVARTIS
  Company Number: NVSC2021FR150088

PATIENT
  Age: 0 Year
  Sex: Female
  Weight: 8.9 kg

DRUGS (5)
  1. ZOLGENSMA [Suspect]
     Active Substance: ONASEMNOGENE ABEPARVOVEC-XIOI
     Indication: Spinal muscular atrophy
     Route: 042
     Dates: start: 20210601, end: 20210601
  2. PREVNAR 13 [Concomitant]
     Active Substance: STREPTOCOCCUS PNEUMONIAE TYPE 1 CAPSULAR POLYSACCHARIDE DIPHTHERIA CRM197 PROTEIN CONJUGATE ANTIGEN\
     Indication: Prophylaxis
     Route: 065
     Dates: start: 20210115
  3. HEXYON [Concomitant]
     Active Substance: DIPHTHERIA AND TETANUS TOXOIDS AND ACELLULAR PERTUSSIS ADSORBED, INACTIVATED POLIOVIRUS AND HAEMOPHI
     Indication: Prophylaxis
     Route: 065
     Dates: start: 20210415
  4. Calcidose [Concomitant]
     Indication: Product used for unknown indication
     Route: 048
     Dates: start: 20210531
  5. VITAMIN D [Concomitant]
     Active Substance: VITAMIN D NOS
     Indication: Product used for unknown indication
     Route: 048
     Dates: start: 20210531

REACTIONS (12)
  - Thrombotic microangiopathy [Recovered/Resolved]
  - Polyuria [Unknown]
  - Thrombocytopenia [Unknown]
  - Pericardial effusion [Unknown]
  - Ascites [Unknown]
  - Eating disorder [Unknown]
  - Oedema [Unknown]
  - Irritability [Unknown]
  - Nausea [Unknown]
  - Vomiting [Unknown]
  - Abdominal distension [Unknown]
  - Pyrexia [Unknown]

NARRATIVE: CASE EVENT DATE: 20210606
